FAERS Safety Report 9972077 (Version 2)
Quarter: 2014Q1

REPORT INFORMATION
  Report Type: Spontaneous
  Country: FR (occurrence: None)
  Receive Date: 20140304
  Receipt Date: 20140314
  Transmission Date: 20141002
  Serious: Yes (Hospitalization)
  Sender: FDA-Public Use
  Company Number: FK201400660

PATIENT
  Age: 77 Year
  Sex: 0
  Weight: 46 kg

DRUGS (2)
  1. IRINOTECAN [Suspect]
     Indication: PRODUCT USED FOR UNKNOWN INDICATION
     Route: 042
     Dates: start: 20131220, end: 20131220
  2. XELODA (CAPECITABINE) (CAPECITABINE) [Suspect]
     Indication: PRODUCT USED FOR UNKNOWN INDICATION
     Route: 048

REACTIONS (7)
  - Asthenia [None]
  - Vomiting [None]
  - Diarrhoea [None]
  - Dehydration [None]
  - Hypomagnesaemia [None]
  - Hypokalaemia [None]
  - Fall [None]
